FAERS Safety Report 6375191-6 (Version None)
Quarter: 2009Q3

REPORT INFORMATION
  Report Type: 
  Country: None (occurrence: None)
  Receive Date: 20090922
  Receipt Date: 20090922
  Transmission Date: 20100115
  Serious: Yes (Other)
  Sender: FDA-Public Use
  Company Number: None

PATIENT
  Age: 29 Year
  Sex: Male

DRUGS (1)
  1. RISPERIDONE [Suspect]
     Indication: SCHIZOPHRENIA, PARANOID TYPE
     Dosage: 1MG 2 DOSES PO
     Route: 048
     Dates: start: 20090822, end: 20090822

REACTIONS (2)
  - PRIAPISM [None]
  - PSYCHOTIC DISORDER [None]
